FAERS Safety Report 4982777-X (Version None)
Quarter: 2006Q2

REPORT INFORMATION
  Report Type: 
  Country: None (occurrence: None)
  Receive Date: 20060420
  Receipt Date: 20060407
  Transmission Date: 20061013
  Serious: Yes (Death, Life-Threatening, Hospitalization)
  Sender: FDA-Public Use
  Company Number: P200600002

PATIENT
  Age: 81 Year
  Sex: Male

DRUGS (18)
  1. PLENAXIS [Suspect]
     Indication: PROSTATE CANCER
     Dosage: SEE IMAGE
     Route: 030
     Dates: start: 20050203, end: 20050203
  2. PLENAXIS [Suspect]
     Indication: PROSTATE CANCER
     Dosage: SEE IMAGE
     Route: 030
     Dates: start: 20050217, end: 20050217
  3. PLENAXIS [Suspect]
     Indication: PROSTATE CANCER
     Dosage: SEE IMAGE
     Route: 030
     Dates: start: 20050303, end: 20050303
  4. PLENAXIS [Suspect]
     Indication: PROSTATE CANCER
     Dosage: SEE IMAGE
     Route: 030
     Dates: start: 20050407, end: 20050407
  5. PLENAXIS [Suspect]
     Indication: PROSTATE CANCER
     Dosage: SEE IMAGE
     Route: 030
     Dates: start: 20050428, end: 20050428
  6. PLENAXIS [Suspect]
     Indication: PROSTATE CANCER
     Dosage: SEE IMAGE
     Route: 030
     Dates: start: 20050601, end: 20050601
  7. PLENAXIS [Suspect]
     Indication: PROSTATE CANCER
     Dosage: SEE IMAGE
     Route: 030
     Dates: start: 20050705, end: 20050705
  8. PLENAXIS [Suspect]
     Indication: PROSTATE CANCER
     Dosage: SEE IMAGE
     Route: 030
     Dates: start: 20050804, end: 20050804
  9. VASOTEC [Concomitant]
  10. NORVASC [Concomitant]
  11. CLONIDINE [Concomitant]
  12. LOPRESSOR [Concomitant]
  13. PROTONIX [Concomitant]
  14. ZOCOR [Concomitant]
  15. LISINOPRIL [Concomitant]
  16. LOVENOX [Concomitant]
  17. ASPIRIN [Concomitant]
  18. ZETIA [Concomitant]

REACTIONS (11)
  - BLOOD CREATINE INCREASED [None]
  - CARDIOMEGALY [None]
  - CHEST PAIN [None]
  - COUGH [None]
  - EXTRASYSTOLES [None]
  - GASTROOESOPHAGEAL REFLUX DISEASE [None]
  - HYPERCHOLESTEROLAEMIA [None]
  - HYPERTENSION [None]
  - RENAL FAILURE [None]
  - SICK SINUS SYNDROME [None]
  - VENTRICULAR HYPERTROPHY [None]
